FAERS Safety Report 11798225 (Version 2)
Quarter: 2016Q1

REPORT INFORMATION
  Report Type: Report from Study
  Country: IL (occurrence: IL)
  Receive Date: 20151203
  Receipt Date: 20160205
  Transmission Date: 20160525
  Serious: Yes (Life-Threatening, Hospitalization, Other)
  Sender: FDA-Public Use
  Company Number: IL-ELI_LILLY_AND_COMPANY-IL201512000183

PATIENT
  Sex: Female

DRUGS (8)
  1. ALDOMIN [Concomitant]
     Dosage: UNK, UNKNOWN
     Route: 064
     Dates: start: 20150910, end: 20150924
  2. ENOXAPARIN SODIUM. [Concomitant]
     Active Substance: ENOXAPARIN SODIUM
     Dosage: UNK UNK, UNKNOWN
     Route: 064
     Dates: start: 20150924, end: 20150924
  3. INSULIN, LISPRO [Suspect]
     Active Substance: INSULIN LISPRO
     Indication: TYPE 1 DIABETES MELLITUS
     Dosage: 24 U, QD
     Route: 064
     Dates: start: 20150221, end: 20150924
  4. CIPRALEX [Concomitant]
     Active Substance: ESCITALOPRAM OXALATE
     Dosage: UNK, UNKNOWN
     Route: 064
     Dates: start: 20150221, end: 20150924
  5. INSULIN, LISPRO [Suspect]
     Active Substance: INSULIN LISPRO
     Dosage: 28 U, QD
     Route: 064
     Dates: start: 20150221, end: 20150924
  6. MAGNESIUM [Concomitant]
     Active Substance: MAGNESIUM
     Dosage: UNK, UNKNOWN
     Route: 064
     Dates: start: 20150924, end: 20150924
  7. INSULIN, LISPRO [Suspect]
     Active Substance: INSULIN LISPRO
     Dosage: 55 U, QD
     Route: 064
     Dates: start: 20150818, end: 20150924
  8. SIMVACOR [Concomitant]
     Active Substance: SIMVASTATIN
     Dosage: UNK, UNKNOWN
     Route: 064
     Dates: start: 20150221, end: 20150924

REACTIONS (6)
  - Premature baby [Unknown]
  - Infantile apnoea [Recovered/Resolved]
  - Neonatal tachypnoea [Unknown]
  - Foetal exposure during pregnancy [Recovered/Resolved]
  - Neonatal respiratory distress syndrome [Recovered/Resolved]
  - Hypoglycaemia neonatal [Recovered/Resolved]

NARRATIVE: CASE EVENT DATE: 20150924
